FAERS Safety Report 13526271 (Version 1)
Quarter: 2017Q2

REPORT INFORMATION
  Report Type: Report from Study
  Country: US (occurrence: US)
  Receive Date: 20170509
  Receipt Date: 20170509
  Transmission Date: 20170830
  Serious: Yes (Hospitalization, Other)
  Sender: FDA-Public Use
  Company Number: US-TORRENT-00002720

PATIENT
  Age: 15 Year
  Sex: Female

DRUGS (7)
  1. FLUOXETINE [Suspect]
     Active Substance: FLUOXETINE HYDROCHLORIDE
  2. LITHIUM. [Suspect]
     Active Substance: LITHIUM
  3. ARIPIPRAZOLE. [Suspect]
     Active Substance: ARIPIPRAZOLE
  4. ESCITALOPRAM [Suspect]
     Active Substance: ESCITALOPRAM OXALATE
  5. SERTRALINE [Suspect]
     Active Substance: SERTRALINE HYDROCHLORIDE
  6. QUETIAPINE. [Suspect]
     Active Substance: QUETIAPINE
  7. GUANFACINE ER [Suspect]
     Active Substance: GUANFACINE

REACTIONS (2)
  - Treatment noncompliance [Unknown]
  - Suicidal ideation [Unknown]
